FAERS Safety Report 9155711 (Version 1)
Quarter: 2013Q1

REPORT INFORMATION
  Report Type: Spontaneous
  Country: FR (occurrence: FR)
  Receive Date: 20130311
  Receipt Date: 20130311
  Transmission Date: 20140127
  Serious: Yes (Other)
  Sender: FDA-Public Use
  Company Number: FR-ABBOTT-13P-056-1054005-00

PATIENT
  Age: 36 Year
  Sex: Female
  Weight: 60 kg

DRUGS (4)
  1. HUMIRA [Suspect]
     Indication: ANKYLOSING SPONDYLITIS
     Dates: start: 20130103, end: 20130103
  2. RIFAMPICINE [Suspect]
     Indication: TUBERCULOSIS
     Route: 048
     Dates: start: 20121031, end: 20130131
  3. MONOCRIXO [Concomitant]
     Indication: PAIN
     Route: 048
     Dates: start: 2012
  4. PENTASA [Concomitant]
     Indication: CROHN^S DISEASE
     Route: 054
     Dates: start: 2009

REACTIONS (1)
  - Dermatitis allergic [Recovered/Resolved]
